FAERS Safety Report 17842291 (Version 1)
Quarter: 2020Q2

REPORT INFORMATION
  Report Type: Spontaneous
  Country: TW (occurrence: TW)
  Receive Date: 20200529
  Receipt Date: 20200529
  Transmission Date: 20200714
  Serious: Yes (Other)
  Sender: FDA-Public Use
  Company Number: TW-JNJFOC-20200530746

PATIENT
  Sex: Male

DRUGS (1)
  1. REGAINE WOMENS FOAM [Suspect]
     Active Substance: MINOXIDIL
     Indication: ALOPECIA
     Route: 061
     Dates: start: 20190901, end: 20200301

REACTIONS (5)
  - Product use issue [Recovered/Resolved]
  - Discomfort [Recovered/Resolved]
  - Intentional product misuse [Recovered/Resolved]
  - Dizziness [Unknown]
  - Syncope [Recovered/Resolved]

NARRATIVE: CASE EVENT DATE: 202001
